FAERS Safety Report 7915331-8 (Version None)
Quarter: 2011Q4

REPORT INFORMATION
  Report Type: 
  Country: None (occurrence: None)
  Receive Date: 20111115
  Receipt Date: 20111104
  Transmission Date: 20120403
  Serious: Yes (Other)
  Sender: FDA-Public Use
  Company Number: PHHY2011CA098588

PATIENT
  Sex: Female

DRUGS (2)
  1. MULTI-VITAMIN [Concomitant]
  2. EXJADE [Suspect]
     Indication: THALASSAEMIA
     Dosage: 500 MG, UNK
     Route: 048
     Dates: start: 20110101

REACTIONS (3)
  - EAR INFECTION [None]
  - HEARING IMPAIRED [None]
  - NASOPHARYNGITIS [None]
